FAERS Safety Report 21239977 (Version 1)
Quarter: 2022Q3

REPORT INFORMATION
  Report Type: Spontaneous
  Country: US (occurrence: None)
  Receive Date: 20220820
  Receipt Date: 20220820
  Transmission Date: 20221026
  Serious: Yes (Disabling, Other)
  Sender: FDA-Public Use
  Company Number: None

PATIENT
  Age: 38 Year
  Sex: Male
  Weight: 117 kg

DRUGS (4)
  1. AMPHETAMINE [Suspect]
     Active Substance: AMPHETAMINE
     Indication: Attention deficit hyperactivity disorder
     Dosage: 1 CAPSULE ORAL
     Route: 048
     Dates: start: 20200815, end: 20200821
  2. CARBAMAZEPINE [Concomitant]
     Active Substance: CARBAMAZEPINE
  3. VIMPAT [Concomitant]
     Active Substance: LACOSAMIDE
  4. PAROXETINE HCL [Concomitant]

REACTIONS (6)
  - Product substitution issue [None]
  - Epileptic aura [None]
  - Fatigue [None]
  - Hunger [None]
  - Dysphemia [None]
  - Drug ineffective [None]

NARRATIVE: CASE EVENT DATE: 20220820
